FAERS Safety Report 8304791 (Version 2)
Quarter: 2012Q4

REPORT INFORMATION
  Report Type: 
  Country: US (occurrence: US)
  Receive Date: 20111221
  Receipt Date: 20121119
  Transmission Date: 20130627
  Serious: No
  Sender: FDA-Public Use
  Company Number: US-PFIZER INC-2011156834

PATIENT
  Age: 69 Year
  Sex: Female

DRUGS (1)
  1. CORGARD [Suspect]
     Dosage: UNK

REACTIONS (1)
  - Hypersensitivity [Unknown]
